FAERS Safety Report 7082008-3 (Version None)
Quarter: 2010Q4

REPORT INFORMATION
  Report Type: 
  Country: None (occurrence: None)
  Receive Date: 20101103
  Receipt Date: 20101029
  Transmission Date: 20110411
  Serious: Yes (Other)
  Sender: FDA-Public Use
  Company Number: US-PFIZER INC-2010138272

PATIENT
  Sex: Female

DRUGS (4)
  1. LIPITOR [Suspect]
     Indication: BLOOD CHOLESTEROL ABNORMAL
     Dosage: 40 MG, UNK
     Route: 048
  2. METFORMIN HYDROCHLORIDE [Concomitant]
     Indication: DIABETES MELLITUS
     Dosage: 500 MG, 1X/DAY
     Route: 048
  3. LASIX [Concomitant]
     Dosage: 40 MG, 2X/DAY
     Route: 048
  4. SYNTHROID [Concomitant]
     Dosage: 1.5 UG, 1X/DAY
     Route: 048

REACTIONS (4)
  - ANAEMIA [None]
  - FATIGUE [None]
  - KNEE ARTHROPLASTY [None]
  - NAUSEA [None]
